FAERS Safety Report 12120253 (Version 1)
Quarter: 2016Q1

REPORT INFORMATION
  Report Type: Spontaneous
  Country: US (occurrence: US)
  Receive Date: 20160226
  Receipt Date: 20160226
  Transmission Date: 20160526
  Serious: Yes (Hospitalization, Disabling)
  Sender: FDA-Public Use
  Company Number: US-ENDO PHARMACEUTICALS INC.-2016-000370

PATIENT
  Age: 52 Year
  Sex: Male
  Weight: 111.23 kg

DRUGS (2)
  1. FORTESTA [Suspect]
     Active Substance: TESTOSTERONE
     Indication: ANDROGEN REPLACEMENT THERAPY
     Route: 061
     Dates: start: 201205
  2. DEPO TESTOSTERONE [Suspect]
     Active Substance: TESTOSTERONE
     Indication: ANDROGEN REPLACEMENT THERAPY
     Route: 065
     Dates: start: 201205

REACTIONS (3)
  - Embolism [Unknown]
  - Cerebrovascular accident [Not Recovered/Not Resolved]
  - Optic nerve hypoplasia [Not Recovered/Not Resolved]

NARRATIVE: CASE EVENT DATE: 20130113
